FAERS Safety Report 14264586 (Version 1)
Quarter: 2017Q4

REPORT INFORMATION
  Report Type: Report from Study
  Country: US (occurrence: US)
  Receive Date: 20171208
  Receipt Date: 20171208
  Transmission Date: 20180321
  Serious: Yes (Other)
  Sender: FDA-Public Use
  Company Number: US-JAZZ-2017-US-013157

PATIENT
  Sex: Male

DRUGS (6)
  1. LEVOXYL [Concomitant]
     Active Substance: LEVOTHYROXINE SODIUM
     Indication: PRODUCT USED FOR UNKNOWN INDICATION
     Dosage: UNK
     Dates: end: 201401
  2. XYREM [Suspect]
     Active Substance: SODIUM OXYBATE
     Dosage: 4.5 G, QD, FIRST DOSE
     Route: 048
     Dates: start: 201609, end: 2017
  3. XYREM [Suspect]
     Active Substance: SODIUM OXYBATE
     Dosage: DOSE ADJUSTMENT
     Route: 048
     Dates: start: 201004, end: 201509
  4. XYREM [Suspect]
     Active Substance: SODIUM OXYBATE
     Dosage: 2 G, QD, SECOND DOSE
     Route: 048
     Dates: start: 201609, end: 2017
  5. XYREM [Suspect]
     Active Substance: SODIUM OXYBATE
     Indication: NARCOLEPSY
     Dosage: 2.25 G, BID
     Route: 048
     Dates: start: 201003, end: 201004
  6. SEROQUEL [Concomitant]
     Active Substance: QUETIAPINE FUMARATE
     Indication: PRODUCT USED FOR UNKNOWN INDICATION
     Dosage: UNK
     Dates: start: 20131009

REACTIONS (5)
  - Sleep apnoea syndrome [Unknown]
  - Asthma [Unknown]
  - Depression [Unknown]
  - Attention deficit/hyperactivity disorder [Unknown]
  - Weight increased [Unknown]

NARRATIVE: CASE EVENT DATE: 2017
